FAERS Safety Report 7397970-9 (Version None)
Quarter: 2011Q2

REPORT INFORMATION
  Report Type: 
  Country: None (occurrence: None)
  Receive Date: 20110406
  Receipt Date: 20110328
  Transmission Date: 20111010
  Serious: Yes (Other)
  Sender: FDA-Public Use
  Company Number: ES-ASTRAZENECA-2011SE06847

PATIENT
  Age: 55 Year
  Sex: Female
  Weight: 70 kg

DRUGS (4)
  1. CORTICOSTEROIDS [Concomitant]
     Dosage: ONE BOX EVERY 8 HOURS
     Route: 048
  2. FASLODEX [Suspect]
     Indication: BREAST CANCER
     Route: 030
     Dates: start: 20100803
  3. FASLODEX [Suspect]
     Route: 030
     Dates: start: 20100831
  4. ANTIHISTAMINES [Concomitant]
     Dosage: ONE BOX EVERY 8 HOURS
     Route: 048
     Dates: start: 20110214, end: 20110218

REACTIONS (7)
  - ASTHENIA [None]
  - BLOOD CREATININE INCREASED [None]
  - INJECTION SITE HAEMATOMA [None]
  - INJECTION SITE INDURATION [None]
  - INJECTION SITE INFLAMMATION [None]
  - TRANSAMINASES INCREASED [None]
  - OLIGURIA [None]
